FAERS Safety Report 4870617-9 (Version None)
Quarter: 2005Q4

REPORT INFORMATION
  Report Type: 
  Country: None (occurrence: None)
  Receive Date: 20051228
  Receipt Date: 20051219
  Transmission Date: 20060501
  Serious: Yes (Other)
  Sender: FDA-Public Use
  Company Number: 114-20785-05120376

PATIENT

DRUGS (6)
  1. THALIDOMIDE (THALIDOMIDE) [Suspect]
     Indication: CLEAR CELL CARCINOMA OF THE KIDNEY
     Dosage: 200 MG, HS, ORAL
     Route: 048
  2. THALIDOMIDE (THALIDOMIDE) [Suspect]
     Indication: RENAL CANCER METASTATIC
     Dosage: 200 MG, HS, ORAL
     Route: 048
  3. INTERKEUKIN-2 (INTERLEUKIN-2) (INJECTION) [Suspect]
     Indication: CLEAR CELL CARCINOMA OF THE KIDNEY
     Dosage: 1 MIU/M2, Q8WK THEN A 2WK REST (1 CYCLE; 10 WEEKS), SUBCUTANEOUS
     Route: 058
  4. INTERKEUKIN-2 (INTERLEUKIN-2) (INJECTION) [Suspect]
     Indication: RENAL CANCER METASTATIC
     Dosage: 1 MIU/M2, Q8WK THEN A 2WK REST (1 CYCLE; 10 WEEKS), SUBCUTANEOUS
     Route: 058
  5. RADIOTHERAPY [Suspect]
     Indication: METASTASES TO BONE
     Dosage: 39 GY, STARTED AFTER 2 WEEKS REST OF CYCLE 1
  6. RADIOTHERAPY [Suspect]
     Indication: METASTASES TO SOFT TISSUE
     Dosage: 39 GY, STARTED AFTER 2 WEEKS REST OF CYCLE 1

REACTIONS (2)
  - MYELOPATHY [None]
  - PARAPARESIS [None]
